FAERS Safety Report 5464647-6 (Version None)
Quarter: 2007Q3

REPORT INFORMATION
  Report Type: 
  Country: None (occurrence: None)
  Receive Date: 20070921
  Receipt Date: 20070917
  Transmission Date: 20080115
  Serious: Yes (Other)
  Sender: FDA-Public Use
  Company Number: GB-MERCK-0709GBR00086

PATIENT
  Sex: Female

DRUGS (2)
  1. PROPECIA [Suspect]
     Route: 065
  2. LEVONORGESTREL [Suspect]
     Route: 065

REACTIONS (4)
  - ABORTION SPONTANEOUS [None]
  - DRUG EXPOSURE DURING PREGNANCY [None]
  - PREGNANCY [None]
  - TRANSMISSION OF DRUG VIA SEMEN [None]
